FAERS Safety Report 10273124 (Version 1)
Quarter: 2014Q3

REPORT INFORMATION
  Report Type: Spontaneous
  Country: IT (occurrence: IT)
  Receive Date: 20140702
  Receipt Date: 20140702
  Transmission Date: 20150326
  Serious: Yes (Hospitalization)
  Sender: FDA-Public Use
  Company Number: IT-MYLANLABS-2014S1014857

PATIENT
  Age: 37 Year
  Sex: Female

DRUGS (5)
  1. ABILIFY [Suspect]
     Active Substance: ARIPIPRAZOLE
     Indication: PRODUCT USED FOR UNKNOWN INDICATION
     Dosage: 15 MG TOTAL
     Route: 048
     Dates: start: 20140215, end: 20140215
  2. DEPAKIN CHRONO /00228502/ [Suspect]
     Active Substance: VALPROIC ACID
     Indication: PRODUCT USED FOR UNKNOWN INDICATION
     Dosage: 1500 MG TOTAL
     Route: 048
     Dates: start: 20140215, end: 20140215
  3. LARGACTIL [Suspect]
     Active Substance: CHLORPROMAZINE
     Indication: PRODUCT USED FOR UNKNOWN INDICATION
     Dosage: 75 MG TOTAL
     Route: 048
     Dates: start: 20140215, end: 20140215
  4. EN [Suspect]
     Active Substance: DELORAZEPAM
     Indication: PRODUCT USED FOR UNKNOWN INDICATION
     Dosage: 1 MG TOTAL
     Route: 048
     Dates: start: 20140215, end: 20140215
  5. VENLAFAXINE [Suspect]
     Active Substance: VENLAFAXINE HYDROCHLORIDE
     Indication: PRODUCT USED FOR UNKNOWN INDICATION
     Dosage: 150 MG TOTAL
     Route: 048
     Dates: start: 20140215, end: 20140215

REACTIONS (4)
  - Confusional state [Unknown]
  - Drug abuse [Unknown]
  - Intentional self-injury [Unknown]
  - Wound [Unknown]

NARRATIVE: CASE EVENT DATE: 20140215
